FAERS Safety Report 17032575 (Version 5)
Quarter: 2019Q4

REPORT INFORMATION
  Report Type: Report from Study
  Country: ES (occurrence: ES)
  Receive Date: 20191114
  Receipt Date: 20191224
  Transmission Date: 20200122
  Serious: Yes (Hospitalization, Other)
  Sender: FDA-Public Use
  Company Number: ES-AMGEN-ESPCT2019186465

PATIENT
  Age: 77 Year
  Sex: Female

DRUGS (7)
  1. CARFILZOMIB [Suspect]
     Active Substance: CARFILZOMIB
     Indication: PLASMA CELL MYELOMA
     Dosage: 20 MILLIGRAM/SQ. METER, PER CHEMO REGIM
     Route: 042
     Dates: start: 20191028
  2. ADIRO [Concomitant]
     Active Substance: ASPIRIN
     Indication: PROPHYLAXIS
     Dosage: 100 MILLIGRAM
     Route: 048
     Dates: start: 20191025
  3. CARFILZOMIB [Suspect]
     Active Substance: CARFILZOMIB
     Dosage: 35 MILLIGRAM/SQ. METER, PER CHEMO REGIM
     Route: 042
     Dates: end: 20191101
  4. AMOXICILLINA [Concomitant]
     Active Substance: AMOXICILLIN
     Dosage: UNK
     Dates: start: 20191030, end: 20191030
  5. DEXAMETHASONE. [Suspect]
     Active Substance: DEXAMETHASONE
     Indication: PLASMA CELL MYELOMA
     Dosage: 40 MILLIGRAM, PER CHEMO REGIM
     Route: 048
     Dates: start: 20191028, end: 20191101
  6. LENALIDOMIDE [Suspect]
     Active Substance: LENALIDOMIDE
     Indication: PLASMA CELL MYELOMA
     Dosage: 25 MILLIGRAM, PER CHEMO REGIM
     Route: 048
     Dates: start: 20191028, end: 20191101
  7. ACICLOVIR [Concomitant]
     Active Substance: ACYCLOVIR
     Indication: CYTOMEGALOVIRUS INFECTION
     Dosage: 1600 MILLIGRAM
     Route: 048
     Dates: start: 20191025

REACTIONS (1)
  - Cellulitis [Recovered/Resolved]

NARRATIVE: CASE EVENT DATE: 20191101
